FAERS Safety Report 5616379-9 (Version None)
Quarter: 2008Q1

REPORT INFORMATION
  Report Type: 
  Country: None (occurrence: None)
  Receive Date: 20080205
  Receipt Date: 20080205
  Transmission Date: 20080703
  Serious: Yes (Death)
  Sender: FDA-Public Use
  Company Number: None

PATIENT
  Age: 40 Year
  Sex: Male
  Weight: 95.709 kg

DRUGS (1)
  1. PROHANCE [Suspect]
     Indication: CONVULSION
     Dosage: 20ML - IV
     Route: 042

REACTIONS (6)
  - ANAPHYLACTOID REACTION [None]
  - CONTRAST MEDIA ALLERGY [None]
  - CONVULSION [None]
  - FALL [None]
  - RESPIRATORY ARREST [None]
  - RETCHING [None]
